FAERS Safety Report 5659223-6 (Version None)
Quarter: 2008Q1

REPORT INFORMATION
  Report Type: 
  Country: None (occurrence: None)
  Receive Date: 20080311
  Receipt Date: 20071017
  Transmission Date: 20080703
  Serious: No
  Sender: FDA-Public Use
  Company Number: US-BAYER-200711905BCC

PATIENT
  Age: 61 Year
  Sex: Male
  Weight: 95 kg

DRUGS (10)
  1. ALEVE [Suspect]
     Indication: HEADACHE
     Dosage: TOTAL DAILY DOSE: 880 MG  UNIT DOSE: 220 MG
     Route: 048
  2. ASPIRIN [Concomitant]
  3. ATENOLOL [Concomitant]
  4. BACLOFEN [Concomitant]
  5. LYRICA [Concomitant]
  6. REQUIP [Concomitant]
  7. PREVACID [Concomitant]
  8. AVODART [Concomitant]
  9. UROXATRAL [Concomitant]
  10. MECLIZINE [Concomitant]

REACTIONS (2)
  - HEADACHE [None]
  - NASAL CONGESTION [None]
